FAERS Safety Report 16737093 (Version 1)
Quarter: 2019Q3

REPORT INFORMATION
  Report Type: Spontaneous
  Country: US (occurrence: US)
  Receive Date: 20190823
  Receipt Date: 20190823
  Transmission Date: 20191005
  Serious: Yes (Hospitalization)
  Sender: FDA-Public Use
  Company Number: US-ALLERGAN-1934587US

PATIENT
  Sex: Female

DRUGS (2)
  1. SERTRALINE [Concomitant]
     Active Substance: SERTRALINE HYDROCHLORIDE
     Dosage: 100 MG, QD
  2. HYDROCHLOROTHIAZIDE UNK [Suspect]
     Active Substance: HYDROCHLOROTHIAZIDE
     Indication: HYPERTENSION
     Dosage: 25 MG, BID
     Route: 065

REACTIONS (5)
  - Electrocardiogram abnormal [Unknown]
  - Blood pressure increased [Unknown]
  - Incorrect dose administered [Unknown]
  - Paralysis [Unknown]
  - Hypokalaemia [Recovered/Resolved]
